FAERS Safety Report 4542043-3 (Version None)
Quarter: 2004Q4

REPORT INFORMATION
  Report Type: 
  Country: None (occurrence: None)
  Receive Date: 20041230
  Receipt Date: 20020516
  Transmission Date: 20050328
  Serious: Yes (Hospitalization, Disabling, Other)
  Sender: FDA-Public Use
  Company Number: US-MERCK-0205USA02121

PATIENT
  Age: 46 Year
  Sex: Female
  Weight: 102 kg

DRUGS (8)
  1. VIOXX [Suspect]
     Indication: INTERVERTEBRAL DISC DEGENERATION
     Route: 048
     Dates: start: 20000911, end: 20000920
  2. VIOXX [Suspect]
     Indication: ARTHRITIS
     Route: 048
     Dates: start: 20000911, end: 20000920
  3. AUGMENTIN '125' [Concomitant]
     Route: 065
  4. ALBUTEROL [Concomitant]
     Route: 055
  5. ALLEGRA [Concomitant]
     Route: 065
  6. FLONASE [Concomitant]
     Route: 065
  7. TORADOL [Concomitant]
     Route: 065
  8. VITAMINS (UNSPECIFIED) [Concomitant]
     Route: 065

REACTIONS (59)
  - ABASIA [None]
  - ABDOMINAL PAIN [None]
  - AMENORRHOEA [None]
  - ANXIETY [None]
  - ARTHRALGIA [None]
  - BACK PAIN [None]
  - BLOOD PH INCREASED [None]
  - BLOOD PRESSURE DIASTOLIC INCREASED [None]
  - CARDIAC FAILURE CONGESTIVE [None]
  - CARPAL TUNNEL SYNDROME [None]
  - COUGH [None]
  - DEHYDRATION [None]
  - DEPRESSION [None]
  - DIARRHOEA [None]
  - DIVERTICULUM [None]
  - ELECTROCARDIOGRAM POOR R-WAVE PROGRESSION [None]
  - EMOTIONAL DISTRESS [None]
  - ENDOMETRIAL HYPERPLASIA [None]
  - ENDOMETRIAL HYPERTROPHY [None]
  - ENDOMETRIAL NEOPLASM [None]
  - FALL [None]
  - FEAR [None]
  - GASTRIC POLYPS [None]
  - GASTRITIS [None]
  - GASTROOESOPHAGEAL REFLUX DISEASE [None]
  - HAEMATOMETRA [None]
  - HAEMORRHOIDS [None]
  - HEADACHE [None]
  - HIATUS HERNIA [None]
  - HYPERHIDROSIS [None]
  - HYPERSENSITIVITY [None]
  - HYPOAESTHESIA [None]
  - INFLAMMATION [None]
  - INJURY [None]
  - INTERVERTEBRAL DISC DISORDER [None]
  - INTERVERTEBRAL DISC DISPLACEMENT [None]
  - INTERVERTEBRAL DISC PROTRUSION [None]
  - JOINT INJURY [None]
  - JOINT SWELLING [None]
  - LACERATION [None]
  - LOOSE STOOLS [None]
  - LUMBAR RADICULOPATHY [None]
  - MENORRHAGIA [None]
  - MYALGIA [None]
  - MYOCARDIAL INFARCTION [None]
  - OEDEMA PERIPHERAL [None]
  - OVARIAN CYST [None]
  - OXYGEN SATURATION DECREASED [None]
  - PAIN [None]
  - PEPTIC ULCER [None]
  - PRESCRIBED OVERDOSE [None]
  - REFLEX SYMPATHETIC DYSTROPHY [None]
  - REFLUX GASTRITIS [None]
  - ROAD TRAFFIC ACCIDENT [None]
  - SKIN LACERATION [None]
  - SLEEP APNOEA SYNDROME [None]
  - TACHYCARDIA [None]
  - WEIGHT INCREASED [None]
  - WOUND [None]
